FAERS Safety Report 19145005 (Version 1)
Quarter: 2021Q2

REPORT INFORMATION
  Report Type: Report from Study
  Country: US (occurrence: US)
  Receive Date: 20210416
  Receipt Date: 20210416
  Transmission Date: 20210717
  Serious: Yes (Other)
  Sender: FDA-Public Use
  Company Number: NVSC2021US076622

PATIENT
  Sex: Female

DRUGS (1)
  1. KISQALI [Suspect]
     Active Substance: RIBOCICLIB
     Indication: PRODUCT USED FOR UNKNOWN INDICATION
     Dosage: UNK
     Route: 065
     Dates: start: 20210322

REACTIONS (6)
  - Pain [Unknown]
  - Dyspnoea [Unknown]
  - Secretion discharge [Unknown]
  - Nausea [Unknown]
  - Palpitations [Unknown]
  - Decreased appetite [Unknown]
